FAERS Safety Report 17218207 (Version 1)
Quarter: 2020Q1

REPORT INFORMATION
  Report Type: Spontaneous
  Country: US (occurrence: US)
  Receive Date: 20191228
  Receipt Date: 20191228
  Transmission Date: 20200409
  Serious: No
  Sender: FDA-Public Use
  Company Number: None

PATIENT
  Age: 45 Year
  Sex: Male
  Weight: 90 kg

DRUGS (1)
  1. ORIGINAL MALE ENHANCER, JET BLACK TM SCIENTIFICALLY OPTIMIZED 97700 PO [Suspect]
     Active Substance: DIETARY SUPPLEMENT
     Indication: ERECTILE DYSFUNCTION
     Dosage: ?          QUANTITY:1 CAPSULE(S);?
     Route: 048
     Dates: start: 20191228, end: 20191228

REACTIONS (12)
  - Heart rate increased [None]
  - Hiccups [None]
  - Muscle contractions involuntary [None]
  - Hyperhidrosis [None]
  - Chills [None]
  - Seizure [None]
  - Dysphonia [None]
  - Swelling face [None]
  - Muscle spasms [None]
  - Rash [None]
  - Nausea [None]
  - Discoloured vomit [None]

NARRATIVE: CASE EVENT DATE: 20191228
